FAERS Safety Report 8058299-9 (Version None)
Quarter: 2012Q1

REPORT INFORMATION
  Report Type: 
  Country: None (occurrence: None)
  Receive Date: 20120120
  Receipt Date: 20120112
  Transmission Date: 20120608
  Serious: Yes (Hospitalization)
  Sender: FDA-Public Use
  Company Number: US-US-EMD SERONO, INC.-7107005

PATIENT
  Sex: Female
  Weight: 61 kg

DRUGS (5)
  1. REBIF [Suspect]
     Indication: MULTIPLE SCLEROSIS
     Route: 058
     Dates: start: 20110512
  2. BACLOFEN [Concomitant]
     Indication: MUSCLE SPASMS
  3. GABAPENTIN [Concomitant]
     Indication: NEURALGIA
  4. AMBIEN [Concomitant]
     Indication: SLEEP DISORDER
  5. PROZAC [Concomitant]
     Indication: DEPRESSION

REACTIONS (2)
  - SUICIDAL IDEATION [None]
  - DEPRESSION [None]
